FAERS Safety Report 20289081 (Version 1)
Quarter: 2022Q1

REPORT INFORMATION
  Report Type: Other
  Country: KR (occurrence: None)
  Receive Date: 20220104
  Receipt Date: 20220104
  Transmission Date: 20220424
  Serious: Yes (Death)
  Sender: FDA-Public Use
  Company Number: KR-ROCHE-2991755

PATIENT
  Age: 24 Year
  Sex: Male

DRUGS (2)
  1. BEVACIZUMAB [Suspect]
     Active Substance: BEVACIZUMAB
     Indication: Neurofibromatosis
     Dosage: 12 TIMES FOR 10 MONTHS
     Route: 042
  2. BEVACIZUMAB [Suspect]
     Active Substance: BEVACIZUMAB
     Dosage: 5 TIMES
     Route: 042

REACTIONS (3)
  - Neoplasm progression [Fatal]
  - Off label use [Unknown]
  - Drug ineffective [Unknown]
